FAERS Safety Report 5392126-3 (Version None)
Quarter: 2007Q3

REPORT INFORMATION
  Report Type: 
  Country: None (occurrence: None)
  Receive Date: 20070718
  Receipt Date: 20070718
  Transmission Date: 20080115
  Serious: Yes (Death)
  Sender: FDA-Public Use
  Company Number: None

PATIENT
  Age: 77 Year
  Sex: Male
  Weight: 86.1834 kg

DRUGS (2)
  1. PROZAC [Suspect]
     Indication: DEPRESSION
  2. LUNESTA [Suspect]

REACTIONS (2)
  - COMPLETED SUICIDE [None]
  - DRUG INTERACTION [None]
